FAERS Safety Report 7495081-5 (Version None)
Quarter: 2011Q2

REPORT INFORMATION
  Report Type: 
  Country: None (occurrence: None)
  Receive Date: 20110520
  Receipt Date: 20110510
  Transmission Date: 20111010
  Serious: Yes (Death, Hospitalization)
  Sender: FDA-Public Use
  Company Number: GB-CELGENEUS-167-21880-11041883

PATIENT
  Age: 67 Year
  Sex: Male
  Weight: 96.2 kg

DRUGS (3)
  1. CYCLOPHOSPHAMIDE [Suspect]
     Route: 048
     Dates: start: 20110325, end: 20110418
  2. DEXAMETHASONE [Suspect]
     Route: 048
     Dates: start: 20110325, end: 20110418
  3. REVLIMID [Suspect]
     Route: 048
     Dates: start: 20110325, end: 20110418

REACTIONS (2)
  - DEATH [None]
  - ALANINE AMINOTRANSFERASE INCREASED [None]
